FAERS Safety Report 25707298 (Version 1)
Quarter: 2025Q3

REPORT INFORMATION
  Report Type: Spontaneous
  Country: US (occurrence: US)
  Receive Date: 20250820
  Receipt Date: 20250820
  Transmission Date: 20251020
  Serious: No
  Sender: Alpha Cognition
  Company Number: US-ALPHA COGNITION-2025-ZUN-00013

PATIENT

DRUGS (2)
  1. ZUNVEYL [Suspect]
     Active Substance: GALANTAMINE BENZOATE
     Indication: Product used for unknown indication
     Dosage: 5 MG, BID
     Route: 048
     Dates: start: 20250516, end: 20250619
  2. ZUNVEYL [Suspect]
     Active Substance: GALANTAMINE BENZOATE
     Dosage: 10 MG, BID
     Route: 048
     Dates: start: 20250620, end: 20250627

REACTIONS (2)
  - Sedation [Recovered/Resolved]
  - Drooling [Recovered/Resolved]

NARRATIVE: CASE EVENT DATE: 20250601
